FAERS Safety Report 23878270 (Version 1)
Quarter: 2024Q2

REPORT INFORMATION
  Report Type: Spontaneous
  Country: US (occurrence: None)
  Receive Date: 20240520
  Receipt Date: 20240520
  Transmission Date: 20240716
  Serious: Yes (Other)
  Sender: FDA-Public Use
  Company Number: None

PATIENT
  Age: 72 Year
  Sex: Male

DRUGS (1)
  1. CAPECITABINE [Suspect]
     Active Substance: CAPECITABINE
     Indication: Positron emission tomogram
     Dosage: OTHER QUANTITY : 2500MGAM/3000MGPM;?FREQUENCY : TWICE A DAY;?

REACTIONS (2)
  - Asthenia [None]
  - Insomnia [None]
